FAERS Safety Report 18955307 (Version 2)
Quarter: 2021Q1

REPORT INFORMATION
  Report Type: Spontaneous
  Country: US (occurrence: US)
  Receive Date: 20210301
  Receipt Date: 20210311
  Transmission Date: 20210420
  Serious: Yes (Hospitalization, Other)
  Sender: FDA-Public Use
  Company Number: US-PFIZER INC-2021201616

PATIENT
  Age: 66 Year
  Sex: Male

DRUGS (10)
  1. AMPHOTERICIN [Concomitant]
     Active Substance: AMPHOTERICIN B
     Indication: ANTIFUNGAL PROPHYLAXIS
     Dosage: NEBULIZER
  2. VALGANCICLOVIR. [Concomitant]
     Active Substance: VALGANCICLOVIR
     Indication: ANTIFUNGAL PROPHYLAXIS
  3. METHYLPREDNISOLONE ACETATE. [Suspect]
     Active Substance: METHYLPREDNISOLONE ACETATE
     Dosage: 250 MG, 1X/DAY
     Route: 042
  4. METHYLPREDNISOLONE ACETATE. [Suspect]
     Active Substance: METHYLPREDNISOLONE ACETATE
     Dosage: SUBSEQUENTLY DECREASED
     Route: 042
  5. AMPHOTERICIN [Concomitant]
     Active Substance: AMPHOTERICIN B
     Indication: ANTIVIRAL PROPHYLAXIS
  6. TACROLIMUS. [Concomitant]
     Active Substance: TACROLIMUS
     Indication: IMMUNOSUPPRESSION
     Dosage: UNK
  7. VALGANCICLOVIR. [Concomitant]
     Active Substance: VALGANCICLOVIR
     Indication: ANTIVIRAL PROPHYLAXIS
     Dosage: UNK
     Route: 042
  8. PREDNISONE. [Suspect]
     Active Substance: PREDNISONE
     Indication: IMMUNOSUPPRESSION
     Dosage: 5 MG, 1X/DAY
  9. METHYLPREDNISOLONE ACETATE. [Suspect]
     Active Substance: METHYLPREDNISOLONE ACETATE
     Indication: IMMUNOSUPPRESSION
     Dosage: 40 MG, 2X/DAY (ONCE EVERY 12HOURS)
     Route: 042
  10. MYCOPHENOLATE MOFETIL. [Concomitant]
     Active Substance: MYCOPHENOLATE MOFETIL
     Indication: IMMUNOSUPPRESSION
     Dosage: UNK

REACTIONS (10)
  - Bronchostenosis [Recovering/Resolving]
  - Pulmonary embolism [Recovering/Resolving]
  - Bronchial disorder [Recovering/Resolving]
  - Dehiscence [Recovering/Resolving]
  - Organising pneumonia [Recovering/Resolving]
  - Necrotising bronchiolitis [Recovering/Resolving]
  - Pneumothorax [Recovering/Resolving]
  - Pulmonary interstitial emphysema syndrome [Recovering/Resolving]
  - Pulmonary oedema [Recovering/Resolving]
  - Ischaemia [Recovering/Resolving]
